FAERS Safety Report 15283704 (Version 1)
Quarter: 2018Q3

REPORT INFORMATION
  Report Type: Spontaneous
  Country: US (occurrence: US)
  Receive Date: 20180816
  Receipt Date: 20180816
  Transmission Date: 20181010
  Serious: No
  Sender: FDA-Public Use
  Company Number: US-SA-2018SA220084

PATIENT
  Sex: Female

DRUGS (10)
  1. ENBREL [Concomitant]
     Active Substance: ETANERCEPT
  2. CIMZIA [Concomitant]
     Active Substance: CERTOLIZUMAB PEGOL
  3. KEVZARA [Suspect]
     Active Substance: SARILUMAB
  4. HUMIRA [Concomitant]
     Active Substance: ADALIMUMAB
  5. MOBIC [Concomitant]
     Active Substance: MELOXICAM
  6. METHOTREXATE. [Concomitant]
     Active Substance: METHOTREXATE
     Dosage: UNK
     Route: 048
  7. ACTEMRA [Concomitant]
     Active Substance: TOCILIZUMAB
  8. ARAVA [Suspect]
     Active Substance: LEFLUNOMIDE
  9. ORENCIA [Concomitant]
     Active Substance: ABATACEPT
  10. SULFASALAZINE. [Concomitant]
     Active Substance: SULFASALAZINE

REACTIONS (2)
  - Drug ineffective [Unknown]
  - Hypersensitivity [Unknown]
